FAERS Safety Report 5357373-5 (Version None)
Quarter: 2007Q2

REPORT INFORMATION
  Report Type: 
  Country: None (occurrence: None)
  Receive Date: 20070614
  Receipt Date: 20070606
  Transmission Date: 20071010
  Serious: Yes (Other)
  Sender: FDA-Public Use
  Company Number: B0474098A

PATIENT
  Sex: Female

DRUGS (1)
  1. ZYBAN [Suspect]
     Dosage: 1TAB VARIABLE DOSE
     Route: 048
     Dates: start: 20070525, end: 20070601

REACTIONS (4)
  - DRY MOUTH [None]
  - INSOMNIA [None]
  - MALAISE [None]
  - SUDDEN ONSET OF SLEEP [None]
